FAERS Safety Report 8407571-9 (Version None)
Quarter: 2012Q2

REPORT INFORMATION
  Report Type: 
  Country: None (occurrence: None)
  Receive Date: 20120323
  Receipt Date: 20110512
  Transmission Date: 20120825
  Serious: Yes (Hospitalization)
  Sender: FDA-Public Use
  Company Number: 163-21880-11051991

PATIENT
  Age: 76 Year
  Sex: Male

DRUGS (1)
  1. REVLIMID [Suspect]
     Indication: MULTIPLE MYELOMA
     Dosage: 15 MG, DAILY FOR 14 DAYS THEN 7 DAYS OFF, PO
     Route: 048
     Dates: start: 20110413, end: 20110101

REACTIONS (3)
  - LARGE INTESTINE PERFORATION [None]
  - CELLULITIS [None]
  - PYREXIA [None]
